FAERS Safety Report 8556052-0 (Version None)
Quarter: 2012Q3

REPORT INFORMATION
  Report Type: 
  Country: None (occurrence: None)
  Receive Date: 20120801
  Receipt Date: 20120727
  Transmission Date: 20120928
  Serious: No
  Sender: FDA-Public Use
  Company Number: US-009507513-1207USA012185

PATIENT

DRUGS (5)
  1. SYMBICORT [Suspect]
     Dosage: 80/4.5 MCG, TWO PUFFS
     Route: 055
  2. PRINIVIL [Suspect]
     Route: 048
  3. SYMBICORT [Suspect]
     Dosage: 80/4.5 MCG, ONE PUFF, AT NIGHT
     Route: 055
  4. METOPROLOL TARTRATE [Suspect]
     Route: 048
  5. GABAPENTIN [Concomitant]
     Route: 048

REACTIONS (4)
  - DYSPNOEA [None]
  - DYSPNOEA EXERTIONAL [None]
  - OFF LABEL USE [None]
  - INTENTIONAL DRUG MISUSE [None]
